FAERS Safety Report 7057863-3 (Version None)
Quarter: 2010Q4

REPORT INFORMATION
  Report Type: 
  Country: None (occurrence: None)
  Receive Date: 20101022
  Receipt Date: 20101011
  Transmission Date: 20110411
  Serious: Yes (Other)
  Sender: FDA-Public Use
  Company Number: US-PFIZER INC-2010126740

PATIENT
  Sex: Female
  Weight: 81.6 kg

DRUGS (6)
  1. CHANTIX [Suspect]
     Indication: SMOKING CESSATION THERAPY
     Dosage: 0.5 MG, 2X/DAY
     Route: 048
     Dates: start: 20101003
  2. BUPROPION [Concomitant]
     Dosage: UNK
  3. LEXAPRO [Concomitant]
     Dosage: UNK
  4. ATENOLOL [Concomitant]
     Dosage: UNK
  5. TRIAMTERENE [Concomitant]
     Dosage: UNK
  6. RISPERIDONE [Concomitant]
     Dosage: UNK

REACTIONS (2)
  - MEMORY IMPAIRMENT [None]
  - URINARY INCONTINENCE [None]
